FAERS Safety Report 7709538-2 (Version None)
Quarter: 2011Q3

REPORT INFORMATION
  Report Type: 
  Country: None (occurrence: None)
  Receive Date: 20110825
  Receipt Date: 20110823
  Transmission Date: 20111222
  Serious: Yes (Death)
  Sender: FDA-Public Use
  Company Number: JM-B.I. PHARMACEUTICALS,INC./RIDGEFIELD-2011-CN-01226CN

PATIENT
  Age: 88 Year
  Sex: Female

DRUGS (6)
  1. SYMBICORT [Concomitant]
  2. VENTOLIN HFA [Concomitant]
     Dosage: PRN
  3. LASIX [Concomitant]
  4. ALDACTONE [Concomitant]
  5. SPIRIVA [Suspect]
     Indication: CHRONIC OBSTRUCTIVE PULMONARY DISEASE
     Dates: start: 20090101
  6. SERETIDE [Concomitant]

REACTIONS (1)
  - COR PULMONALE [None]
